FAERS Safety Report 9389449 (Version 1)
Quarter: 2013Q3

REPORT INFORMATION
  Report Type: Spontaneous
  Country: US (occurrence: US)
  Receive Date: 20130708
  Receipt Date: 20130708
  Transmission Date: 20140515
  Serious: No
  Sender: FDA-Public Use
  Company Number: US-AMGEN-USASP2013041349

PATIENT
  Age: 80 Year
  Sex: Female

DRUGS (4)
  1. ENBREL [Suspect]
     Indication: RHEUMATOID ARTHRITIS
     Dosage: UNK
     Route: 065
  2. ASPIRIN [Concomitant]
     Dosage: UNK
  3. VITAMINS /90003601/ [Concomitant]
     Dosage: UNK
  4. THYROID THERAPY [Concomitant]
     Dosage: UNK

REACTIONS (2)
  - General physical health deterioration [Unknown]
  - Rheumatoid arthritis [Recovering/Resolving]
